FAERS Safety Report 21881040 (Version 1)
Quarter: 2023Q1

REPORT INFORMATION
  Report Type: Report from Study
  Country: CO (occurrence: CO)
  Receive Date: 20230118
  Receipt Date: 20230118
  Transmission Date: 20230417
  Serious: Yes (Other)
  Sender: FDA-Public Use
  Company Number: CO-ABBVIE-21K-036-4045812-00

PATIENT
  Age: 61 Year
  Sex: Female
  Weight: 65 kg

DRUGS (1)
  1. SKYRIZI [Suspect]
     Active Substance: RISANKIZUMAB-RZAA
     Indication: Psoriasis
     Route: 058
     Dates: start: 20201223, end: 20210630

REACTIONS (19)
  - Tuberculosis [Unknown]
  - Skin disorder [Not Recovered/Not Resolved]
  - Pruritus [Not Recovered/Not Resolved]
  - Haematemesis [Recovered/Resolved]
  - Arthralgia [Not Recovered/Not Resolved]
  - Psoriasis [Not Recovered/Not Resolved]
  - Abdominal pain [Not Recovered/Not Resolved]
  - General physical health deterioration [Unknown]
  - Muscular weakness [Not Recovered/Not Resolved]
  - Prescription drug used without a prescription [Not Recovered/Not Resolved]
  - Psoriatic arthropathy [Not Recovered/Not Resolved]
  - Fear [Not Recovered/Not Resolved]
  - Skin plaque [Not Recovered/Not Resolved]
  - Cough [Recovered/Resolved]
  - Adverse drug reaction [Unknown]
  - Epistaxis [Recovered/Resolved]
  - Arthralgia [Not Recovered/Not Resolved]
  - Gait disturbance [Not Recovered/Not Resolved]
  - Finger deformity [Not Recovered/Not Resolved]

NARRATIVE: CASE EVENT DATE: 20210701
